FAERS Safety Report 13390168 (Version 1)
Quarter: 2017Q1

REPORT INFORMATION
  Report Type: Spontaneous
  Country: FR (occurrence: FR)
  Receive Date: 20170331
  Receipt Date: 20170331
  Transmission Date: 20170429
  Serious: Yes (Hospitalization)
  Sender: FDA-Public Use
  Company Number: FR-ASTRAZENECA-2017SE32175

PATIENT
  Age: 43 Year
  Sex: Female

DRUGS (9)
  1. DEPAKOTE [Suspect]
     Active Substance: DIVALPROEX SODIUM
     Indication: PSYCHOTIC DISORDER
     Dosage: 250 MG IN THE MORNING AND 500 MG ON THE EVENING
     Route: 048
     Dates: start: 201606, end: 20170202
  2. METHADONE [Concomitant]
     Active Substance: METHADONE HYDROCHLORIDE
  3. XEROQUEL SR [Suspect]
     Active Substance: QUETIAPINE FUMARATE
     Indication: PSYCHOTIC DISORDER
     Route: 048
     Dates: start: 201606, end: 20170117
  4. VENLAFAXINE [Concomitant]
     Active Substance: VENLAFAXINE HYDROCHLORIDE
  5. AOTAL [Concomitant]
     Active Substance: ACAMPROSATE CALCIUM
  6. ALPRAZOLAM. [Concomitant]
     Active Substance: ALPRAZOLAM
  7. LEPTICUR [Concomitant]
     Active Substance: TROPATEPINE HYDROCHLORIDE
  8. LEXOMIL [Concomitant]
     Active Substance: BROMAZEPAM
  9. NICOTINE. [Concomitant]
     Active Substance: NICOTINE

REACTIONS (2)
  - Hypothyroidism [Recovered/Resolved with Sequelae]
  - Hepatic enzyme increased [Recovered/Resolved]
